FAERS Safety Report 8486988-0 (Version None)
Quarter: 2012Q3

REPORT INFORMATION
  Report Type: 
  Country: None (occurrence: None)
  Receive Date: 20120704
  Receipt Date: 20120627
  Transmission Date: 20120928
  Serious: Yes (Hospitalization, Other)
  Sender: FDA-Public Use
  Company Number: PHHY2012FI040905

PATIENT
  Age: 80 Year
  Sex: Male

DRUGS (4)
  1. CLOZAPINE [Suspect]
     Dates: start: 20120626
  2. CLOZAPINE [Suspect]
     Dosage: 75 MG/DAY
     Dates: start: 20110808
  3. CLOZAPINE [Suspect]
     Indication: SCHIZOPHRENIA
     Dosage: 150 MG, UNK
     Route: 048
     Dates: start: 20110627
  4. CLOZAPINE [Suspect]
     Dosage: 125 MG, UNK
     Dates: start: 20120123, end: 20120306

REACTIONS (12)
  - DIZZINESS [None]
  - HYPERTENSION [None]
  - HYPOTENSION [None]
  - C-REACTIVE PROTEIN INCREASED [None]
  - WHITE BLOOD CELL COUNT DECREASED [None]
  - PNEUMONIA [None]
  - HEADACHE [None]
  - GENERAL PHYSICAL CONDITION ABNORMAL [None]
  - NEUTROPHIL COUNT DECREASED [None]
  - DYSPNOEA [None]
  - CHEST PAIN [None]
  - RHINITIS [None]
